FAERS Safety Report 10448765 (Version 1)
Quarter: 2014Q3

REPORT INFORMATION
  Report Type: Report from Study
  Country: US (occurrence: US)
  Receive Date: 20140912
  Receipt Date: 20140912
  Transmission Date: 20150326
  Serious: Yes (Other)
  Sender: FDA-Public Use
  Company Number: US-009507513-1409USA005182

PATIENT
  Age: 63 Year
  Sex: Female
  Weight: 81.18 kg

DRUGS (3)
  1. ANTIMICROBIAL (UNSPECIFIED) [Suspect]
     Active Substance: UNSPECIFIED INGREDIENT
     Dosage: UNK
     Dates: start: 2014
  2. FOSAMAX [Suspect]
     Active Substance: ALENDRONATE SODIUM
     Indication: OSTEOPOROSIS
     Route: 048
  3. HUMIRA [Suspect]
     Active Substance: ADALIMUMAB
     Indication: COLITIS ULCERATIVE
     Dosage: 1 DF, QOW
     Route: 065
     Dates: start: 2009, end: 201408

REACTIONS (7)
  - Cough [Unknown]
  - Dyspnoea [Unknown]
  - Bronchitis [Unknown]
  - Bone pain [Recovered/Resolved]
  - Bronchopneumonia [Unknown]
  - Femur fracture [Recovered/Resolved]
  - Urinary tract infection [Unknown]

NARRATIVE: CASE EVENT DATE: 201007
